FAERS Safety Report 8366902-9 (Version None)
Quarter: 2012Q2

REPORT INFORMATION
  Report Type: 
  Country: None (occurrence: None)
  Receive Date: 20120517
  Receipt Date: 20120511
  Transmission Date: 20120825
  Serious: Yes (Hospitalization)
  Sender: FDA-Public Use
  Company Number: PL-JNJFOC-20100306036

PATIENT
  Sex: Female
  Weight: 53 kg

DRUGS (10)
  1. SIMPONI [Suspect]
     Indication: RHEUMATOID ARTHRITIS
     Route: 058
     Dates: start: 20091015
  2. METHOTREXATE [Suspect]
     Indication: RHEUMATOID ARTHRITIS
     Route: 048
     Dates: start: 20060922, end: 20061013
  3. DICLOFENAC SODIUM [Concomitant]
     Route: 048
     Dates: start: 20060719
  4. PLACEBO [Suspect]
     Indication: RHEUMATOID ARTHRITIS
     Route: 058
     Dates: start: 20061019, end: 20070308
  5. SIMPONI [Suspect]
     Route: 058
     Dates: start: 20071115
  6. SIMPONI [Suspect]
     Route: 058
     Dates: start: 20070405
  7. METHOTREXATE [Suspect]
     Route: 048
     Dates: start: 20061020, end: 20080103
  8. ACIDUM FOLICUM [Concomitant]
     Route: 048
     Dates: start: 20021010
  9. METHYLPREDNISOLONE [Concomitant]
     Route: 048
     Dates: start: 20060815
  10. METHOTREXATE [Concomitant]
     Dates: start: 20080630

REACTIONS (1)
  - DRUG ERUPTION [None]
